FAERS Safety Report 9345524 (Version 7)
Quarter: 2014Q1

REPORT INFORMATION
  Report Type: Report from Study
  Country: US (occurrence: US)
  Receive Date: 20130613
  Receipt Date: 20140319
  Transmission Date: 20141002
  Serious: Yes (Life-Threatening, Hospitalization)
  Sender: FDA-Public Use
  Company Number: US-JNJFOC-20130603961

PATIENT
  Age: 20 Year
  Sex: Male
  Weight: 62.14 kg

DRUGS (11)
  1. REMICADE [Suspect]
     Indication: CROHN^S DISEASE
     Route: 042
     Dates: start: 20011010
  2. CIMZIA [Suspect]
     Indication: CROHN^S DISEASE
     Route: 065
     Dates: start: 20130531
  3. PREDNISONE [Concomitant]
     Indication: CROHN^S DISEASE
     Route: 065
  4. SINGULAIR [Concomitant]
     Route: 065
  5. OMEPRAZOLE [Concomitant]
     Route: 065
  6. 5-ASA [Concomitant]
     Indication: CROHN^S DISEASE
     Route: 048
  7. VITAMIN D [Concomitant]
     Route: 065
  8. VENTOLIN [Concomitant]
     Route: 065
  9. IRON [Concomitant]
     Route: 065
  10. HYDROCORTISONE [Concomitant]
     Route: 065
  11. BACTRIM [Concomitant]
     Route: 065

REACTIONS (2)
  - Anaphylactic reaction [Recovered/Resolved]
  - Crohn^s disease [Recovered/Resolved]
